FAERS Safety Report 6269688-7 (Version None)
Quarter: 2009Q3

REPORT INFORMATION
  Report Type: 
  Country: None (occurrence: None)
  Receive Date: 20090716
  Receipt Date: 20090709
  Transmission Date: 20100115
  Serious: Yes (Hospitalization)
  Sender: FDA-Public Use
  Company Number: US-BIOGENIDEC-2009BI019274

PATIENT
  Age: 57 Year
  Sex: Female

DRUGS (2)
  1. AVONEX [Suspect]
     Indication: MULTIPLE SCLEROSIS
     Route: 030
     Dates: start: 20080716
  2. AVONEX [Suspect]
     Route: 030

REACTIONS (4)
  - ANAEMIA [None]
  - BRONCHITIS [None]
  - DIVERTICULITIS [None]
  - LOSS OF CONSCIOUSNESS [None]
